FAERS Safety Report 6463102-4 (Version None)
Quarter: 2009Q4

REPORT INFORMATION
  Report Type: 
  Country: None (occurrence: None)
  Receive Date: 20091130
  Receipt Date: 20091116
  Transmission Date: 20100525
  Serious: Yes (Hospitalization, Disabling, Other)
  Sender: FDA-Public Use
  Company Number: US-ELI_LILLY_AND_COMPANY-US200904001382

PATIENT
  Sex: Male
  Weight: 104.31 kg

DRUGS (5)
  1. ZYPREXA [Suspect]
     Dosage: 20 MG, UNKNOWN
     Dates: start: 19970101
  2. ZYPREXA [Suspect]
     Dosage: UNK, UNKNOWN
     Dates: start: 20050101
  3. RISPERIDONE [Concomitant]
     Dosage: UNK, UNKNOWN
     Dates: start: 20000101
  4. CELEXA [Concomitant]
     Dosage: UNK, UNKNOWN
     Dates: start: 19950101
  5. PROZAC                             /00724401/ [Concomitant]
     Dosage: UNK, UNKNOWN
     Dates: start: 20010101

REACTIONS (9)
  - DEPRESSION [None]
  - DIABETES MELLITUS [None]
  - DIABETIC COMA [None]
  - DIABETIC KETOACIDOSIS [None]
  - HYPERGLYCAEMIA [None]
  - PANCREATITIS [None]
  - PANCREATITIS CHRONIC [None]
  - SURGERY [None]
  - WEIGHT INCREASED [None]
